FAERS Safety Report 9999598 (Version 1)
Quarter: 2014Q1

REPORT INFORMATION
  Report Type: Spontaneous
  Country: US (occurrence: US)
  Receive Date: 20140312
  Receipt Date: 20140312
  Transmission Date: 20141002
  Serious: No
  Sender: FDA-Public Use
  Company Number: US-B.I. PHARMACEUTICALS,INC./RIDGEFIELD-2014-BI-09486BP

PATIENT
  Age: 49 Year
  Sex: Male
  Weight: 75 kg

DRUGS (5)
  1. SPIRIVA [Suspect]
     Indication: ASTHMA
     Dosage: 18 MCG
     Route: 055
     Dates: start: 201311, end: 20140228
  2. ADVAIR DISKUS [Concomitant]
     Indication: ASTHMA
     Dosage: FORMULATION: INHALATION SPRAY, STRENGTH: 500/50 MCG; DAILY DOSE: 1000/100 MCG
     Route: 055
  3. MONTELUKAST [Concomitant]
     Indication: ASTHMA
     Dosage: 10 MG
     Route: 048
  4. GUAIFENESIN [Concomitant]
     Indication: SINUS CONGESTION
     Dosage: 800 MG
     Route: 048
  5. FLUTICASONE [Concomitant]
     Indication: SINUS CONGESTION
     Dosage: 50 MCG
     Route: 045

REACTIONS (9)
  - Dry eye [Recovered/Resolved]
  - Thirst [Recovered/Resolved]
  - Abnormal faeces [Recovered/Resolved]
  - Abnormal faeces [Recovered/Resolved]
  - Faeces hard [Recovered/Resolved]
  - Constipation [Recovered/Resolved]
  - Dry mouth [Recovered/Resolved]
  - Lip dry [Recovered/Resolved]
  - Off label use [Unknown]
